FAERS Safety Report 9746681 (Version 2)
Quarter: 2014Q1

REPORT INFORMATION
  Report Type: Spontaneous
  Country: IT (occurrence: IT)
  Receive Date: 20131211
  Receipt Date: 20140207
  Transmission Date: 20141002
  Serious: Yes (Hospitalization)
  Sender: FDA-Public Use
  Company Number: IT-ACTAVIS-2013-22644

PATIENT
  Age: 46 Year
  Sex: Male
  Weight: 86 kg

DRUGS (3)
  1. AMOXICILLIN-CLAVULANIC ACID [Suspect]
     Indication: ANIMAL BITE
     Dosage: 1 G, Q8H
     Route: 048
     Dates: start: 20131006, end: 20131011
  2. AMOXICILLIN-CLAVULANIC ACID [Suspect]
     Dosage: 1 G, BID
     Route: 048
     Dates: start: 20131017, end: 20131022
  3. PARACETAMOL-CODEINE PHOSPHATE (UNKNOWN) [Suspect]
     Indication: PROCEDURAL PAIN
     Dosage: 1000 MG, SINGLE
     Route: 048
     Dates: start: 20131018, end: 20131018

REACTIONS (2)
  - Angioedema [Recovered/Resolved]
  - Urticaria [Recovered/Resolved]
